FAERS Safety Report 5572880-8 (Version None)
Quarter: 2007Q4

REPORT INFORMATION
  Report Type: 
  Country: None (occurrence: None)
  Receive Date: 20071223
  Receipt Date: 20071217
  Transmission Date: 20080405
  Serious: Yes (Disabling, Other)
  Sender: FDA-Public Use
  Company Number: PHNU2007DE04190

PATIENT
  Age: 54 Year
  Sex: Female
  Weight: 67 kg

DRUGS (3)
  1. ZOMETA [Suspect]
     Indication: METASTASES TO BONE
     Dosage: 3 MG, QMO
     Route: 042
     Dates: start: 20061030, end: 20070329
  2. XELODA [Concomitant]
     Indication: BREAST CANCER METASTATIC
     Dosage: 3000 MG, UNK
     Route: 048
     Dates: start: 20060425, end: 20070219
  3. HERCEPTIN [Concomitant]
     Dates: start: 20060918

REACTIONS (6)
  - DENTAL OPERATION [None]
  - INFLAMMATION [None]
  - MYALGIA [None]
  - NAUSEA [None]
  - OSTEONECROSIS [None]
  - STOMATITIS [None]
